FAERS Safety Report 11803342 (Version 1)
Quarter: 2015Q4

REPORT INFORMATION
  Report Type: Spontaneous
  Country: BR (occurrence: BR)
  Receive Date: 20151204
  Receipt Date: 20151204
  Transmission Date: 20160305
  Serious: Yes (Hospitalization)
  Sender: FDA-Public Use
  Company Number: BR-PFIZER INC-2015418645

PATIENT
  Age: 87 Year
  Sex: Male
  Weight: 105 kg

DRUGS (3)
  1. LIPITOR [Suspect]
     Active Substance: ATORVASTATIN CALCIUM
     Dosage: UNK
     Dates: start: 20120110
  2. CITALOR [Suspect]
     Active Substance: ATORVASTATIN
     Dosage: UNK
     Dates: start: 20081016
  3. FRONTAL [Suspect]
     Active Substance: ALPRAZOLAM
     Dosage: UNK
     Dates: start: 20081016

REACTIONS (2)
  - Amnesia [Unknown]
  - Arrhythmia [Unknown]
